FAERS Safety Report 6897993-X (Version None)
Quarter: 2010Q3

REPORT INFORMATION
  Report Type: 
  Country: None (occurrence: None)
  Receive Date: 20100802
  Receipt Date: 20070817
  Transmission Date: 20110219
  Serious: No
  Sender: FDA-Public Use
  Company Number: US-PFIZER INC-2007067699

PATIENT
  Sex: Female
  Weight: 59.9 kg

DRUGS (8)
  1. LYRICA [Suspect]
     Indication: FIBROMYALGIA
     Route: 048
     Dates: start: 20070811
  2. LYRICA [Suspect]
     Indication: RHEUMATOID ARTHRITIS
  3. CALAN [Concomitant]
  4. ESTRACE [Concomitant]
  5. FLEXERIL [Concomitant]
  6. ZOLPIDEM TARTRATE [Concomitant]
  7. KLONOPIN [Concomitant]
  8. CELEBREX [Concomitant]

REACTIONS (1)
  - DRUG INEFFECTIVE [None]
